APPROVED DRUG PRODUCT: BACLOFEN
Active Ingredient: BACLOFEN
Strength: 5MG
Dosage Form/Route: TABLET;ORAL
Application: A077971 | Product #003
Applicant: IMPAX LABORATORIES LLC
Approved: Jul 7, 2021 | RLD: No | RS: No | Type: DISCN